FAERS Safety Report 11449687 (Version 1)
Quarter: 2015Q3

REPORT INFORMATION
  Report Type: Spontaneous
  Country: US (occurrence: US)
  Receive Date: 20150903
  Receipt Date: 20150903
  Transmission Date: 20151125
  Serious: Yes (Other)
  Sender: FDA-Public Use
  Company Number: US-ROCHE-1088314

PATIENT
  Age: 48 Year
  Sex: Female

DRUGS (5)
  1. PEG-INTERFERON ALFA 2A [Suspect]
     Active Substance: PEGINTERFERON ALFA-2A
     Dosage: 180 MCG
     Route: 058
  2. ALEMTUZUMAB [Concomitant]
     Active Substance: ALEMTUZUMAB
  3. PEG-INTERFERON ALFA 2A [Suspect]
     Active Substance: PEGINTERFERON ALFA-2A
     Indication: EOSINOPHILIA
     Dosage: 100 MCG
     Route: 058
  4. DEXAMETHASONE. [Concomitant]
     Active Substance: DEXAMETHASONE
     Route: 065
  5. PEG-INTERFERON ALFA 2A [Suspect]
     Active Substance: PEGINTERFERON ALFA-2A
     Dosage: 45 MCG
     Route: 058

REACTIONS (5)
  - Depression [Recovering/Resolving]
  - Hypothyroidism [Recovering/Resolving]
  - Myalgia [Recovering/Resolving]
  - Transaminases increased [Recovering/Resolving]
  - Lymphopenia [Recovered/Resolved]
